FAERS Safety Report 18475625 (Version 1)
Quarter: 2020Q4

REPORT INFORMATION
  Report Type: Spontaneous
  Country: ES (occurrence: ES)
  Receive Date: 20201106
  Receipt Date: 20201106
  Transmission Date: 20210114
  Serious: Yes (Other)
  Sender: FDA-Public Use
  Company Number: ES-GE HEALTHCARE LIFE SCIENCES-2020CSU005607

PATIENT

DRUGS (17)
  1. BROMAZEPAM [Concomitant]
     Active Substance: BROMAZEPAM
  2. RAPISCAN [Suspect]
     Active Substance: REGADENOSON
     Indication: SINGLE PHOTON EMISSION COMPUTERISED TOMOGRAM
     Dosage: 400MCG(5ML), IN 10 SEC BOLUS, PERIPHERAL VEIN, SINGLE; FOLLOWED BY 5 ML SALINE
     Route: 042
  3. TECHNETIUM TC 99M [Concomitant]
     Active Substance: TECHNETIUM TC-99M
     Indication: DYSPNOEA
  4. ATORVASTATIN [Concomitant]
     Active Substance: ATORVASTATIN
  5. FUROSEMIDE. [Concomitant]
     Active Substance: FUROSEMIDE
  6. RAPISCAN [Suspect]
     Active Substance: REGADENOSON
     Indication: ANGINA PECTORIS
  7. MYOVIEW [Suspect]
     Active Substance: TECHNETIUM TC-99M TETROFOSMIN
     Indication: DYSPNOEA
  8. TECHNETIUM TC 99M [Concomitant]
     Active Substance: TECHNETIUM TC-99M
     Indication: SINGLE PHOTON EMISSION COMPUTERISED TOMOGRAM
     Dosage: 740 MBQ (20MCI); SINGLE
     Route: 042
  9. TECHNETIUM TC 99M [Concomitant]
     Active Substance: TECHNETIUM TC-99M
     Indication: ANGINA PECTORIS
  10. BISOPROLOL [Concomitant]
     Active Substance: BISOPROLOL
  11. EZETIMIBE. [Concomitant]
     Active Substance: EZETIMIBE
  12. MYOVIEW [Suspect]
     Active Substance: TECHNETIUM TC-99M TETROFOSMIN
     Indication: SINGLE PHOTON EMISSION COMPUTERISED TOMOGRAM
     Dosage: 740 MBQ (20MCI), SINGLE
     Route: 042
  13. RAPISCAN [Suspect]
     Active Substance: REGADENOSON
     Indication: DYSPNOEA
  14. MYOVIEW [Suspect]
     Active Substance: TECHNETIUM TC-99M TETROFOSMIN
     Indication: ANGINA PECTORIS
  15. SALINE [SODIUM CHLORIDE] [Concomitant]
     Active Substance: SODIUM CHLORIDE
     Dosage: 5 ML
  16. OMEPRAZOLE. [Concomitant]
     Active Substance: OMEPRAZOLE
  17. CLOPIDOGREL [Concomitant]
     Active Substance: CLOPIDOGREL BISULFATE

REACTIONS (3)
  - Ventricular tachycardia [Recovered/Resolved]
  - Hypotension [Recovered/Resolved]
  - Dizziness [Recovered/Resolved]
